FAERS Safety Report 6818257-6 (Version None)
Quarter: 2010Q3

REPORT INFORMATION
  Report Type: 
  Country: None (occurrence: None)
  Receive Date: 20100706
  Receipt Date: 20070315
  Transmission Date: 20110219
  Serious: No
  Sender: FDA-Public Use
  Company Number: US-PFIZER INC-2007023287

PATIENT
  Sex: Male
  Weight: 65.77 kg

DRUGS (4)
  1. ZITHROMAX [Suspect]
     Indication: UPPER RESPIRATORY TRACT INFECTION
     Dates: start: 20070301
  2. VYTORIN [Interacting]
     Indication: BLOOD CHOLESTEROL INCREASED
  3. PLAVIX [Concomitant]
  4. TOPROL-XL [Concomitant]

REACTIONS (2)
  - DRUG INTERACTION [None]
  - HEADACHE [None]
